FAERS Safety Report 5253892-0 (Version None)
Quarter: 2007Q1

REPORT INFORMATION
  Report Type: 
  Country: None (occurrence: None)
  Receive Date: 20070228
  Receipt Date: 20070228
  Transmission Date: 20070707
  Serious: Yes (Hospitalization)
  Sender: FDA-Public Use
  Company Number: None

PATIENT
  Sex: Male

DRUGS (23)
  1. ENBREL [Suspect]
     Indication: RHEUMATOID ARTHRITIS
     Dosage: 50 MG WEEKLY SUB Q
     Route: 058
     Dates: start: 20010101, end: 20070101
  2. OXYCODONE [Concomitant]
  3. ALDACTONE [Concomitant]
  4. LASIX [Concomitant]
  5. INDERAL [Concomitant]
  6. COLACE [Concomitant]
  7. ALLBEE WITH C [Concomitant]
  8. INDERAL LA [Concomitant]
  9. FLONASE [Concomitant]
  10. LASIX [Concomitant]
  11. PREDNISONE [Concomitant]
  12. ROCEPHIN [Concomitant]
  13. PROTONIX [Concomitant]
  14. NYSTATIN [Concomitant]
  15. ALDACTONE [Concomitant]
  16. LACTULOSE [Concomitant]
  17. MIRALAX [Concomitant]
  18. AMBIEN [Concomitant]
  19. POTASSIUM ACETATE [Concomitant]
  20. PREDNISONE [Concomitant]
  21. PROTONIX [Concomitant]
  22. FACILITY BOWEL REGIMEN [Concomitant]
  23. MAG CITRATE [Concomitant]

REACTIONS (1)
  - SALMONELLA BACTERAEMIA [None]
